FAERS Safety Report 9965862 (Version 1)
Quarter: 2014Q1

REPORT INFORMATION
  Report Type: Report from Study
  Country: US (occurrence: US)
  Receive Date: 20140305
  Receipt Date: 20140305
  Transmission Date: 20141002
  Serious: No
  Sender: FDA-Public Use
  Company Number: US-ABBVIE-13P-163-1124776-00

PATIENT
  Age: 65 Year
  Sex: Female
  Weight: 78.54 kg

DRUGS (7)
  1. HUMIRA [Suspect]
     Indication: RHEUMATOID ARTHRITIS
     Dates: start: 201301, end: 201307
  2. CYMBALTA [Concomitant]
     Indication: DEPRESSION
  3. IMITREX [Concomitant]
     Indication: MIGRAINE
     Dosage: PRN
  4. LEFLUNOMIDE [Concomitant]
     Indication: RHEUMATOID ARTHRITIS
  5. MULTIVITAMIN [Concomitant]
     Indication: VITAMIN SUPPLEMENTATION
  6. PREMARIN [Concomitant]
     Indication: HORMONE REPLACEMENT THERAPY
  7. TOPOMAX [Concomitant]
     Indication: MIGRAINE

REACTIONS (1)
  - Rheumatoid arthritis [Not Recovered/Not Resolved]
